FAERS Safety Report 7996201-6 (Version None)
Quarter: 2011Q4

REPORT INFORMATION
  Report Type: 
  Country: None (occurrence: None)
  Receive Date: 20111220
  Receipt Date: 20111216
  Transmission Date: 20120403
  Serious: Yes (Life-Threatening, Hospitalization)
  Sender: FDA-Public Use
  Company Number: PHHO2011AT03646

PATIENT
  Sex: Female
  Weight: 62 kg

DRUGS (4)
  1. MYFORTIC [Suspect]
     Indication: RENAL TRANSPLANT
     Dosage: 360 MG, BID,  PRN
     Route: 048
     Dates: start: 20110222
  2. PROGRAF [Suspect]
     Indication: RENAL TRANSPLANT
     Dosage: PRN BID
     Route: 048
     Dates: start: 20110222
  3. PANTOPRAZOLE SODIUM [Concomitant]
     Indication: PROPHYLAXIS
     Dosage: 400 MG, TID
     Route: 048
     Dates: start: 20110224
  4. PREDNISOLONE [Suspect]
     Indication: RENAL TRANSPLANT
     Dosage: PRN BID
     Route: 048
     Dates: start: 20110222

REACTIONS (2)
  - GASTROINTESTINAL HAEMORRHAGE [None]
  - PNEUMOMEDIASTINUM [None]
